FAERS Safety Report 4434069-5 (Version None)
Quarter: 2004Q3

REPORT INFORMATION
  Report Type: 
  Country: None (occurrence: None)
  Receive Date: 20040825
  Receipt Date: 20040809
  Transmission Date: 20050211
  Serious: Yes (Hospitalization)
  Sender: FDA-Public Use
  Company Number: US_0408104701

PATIENT
  Age: 55 Year
  Sex: Female

DRUGS (1)
  1. FLUOXETINE HCL [Suspect]
     Indication: DEPRESSION
     Dosage: 20 MG/1 DAY

REACTIONS (9)
  - CHILLS [None]
  - DIALYSIS [None]
  - DRUG INEFFECTIVE [None]
  - HEPATITIS CHOLESTATIC [None]
  - INSOMNIA [None]
  - PLATELET COUNT DECREASED [None]
  - PROTHROMBIN TIME PROLONGED [None]
  - SCRATCH [None]
  - SUICIDAL IDEATION [None]
